FAERS Safety Report 7090092-6 (Version None)
Quarter: 2010Q4

REPORT INFORMATION
  Report Type: 
  Country: None (occurrence: None)
  Receive Date: 20101109
  Receipt Date: 20101026
  Transmission Date: 20110411
  Serious: Yes (Other)
  Sender: FDA-Public Use
  Company Number: IT-RANBAXY-2010RR-37797

PATIENT
  Age: 3 Year
  Sex: Male
  Weight: 14 kg

DRUGS (2)
  1. AMOXICILLIN [Suspect]
     Indication: STREPTOCOCCAL INFECTION
     Dosage: 50 MG/KG, UNK
  2. COTRIM [Concomitant]
     Dosage: UNK

REACTIONS (1)
  - HAEMOLYTIC ANAEMIA [None]
